FAERS Safety Report 5238755-9 (Version None)
Quarter: 2007Q1

REPORT INFORMATION
  Report Type: 
  Country: None (occurrence: None)
  Receive Date: 20070215
  Receipt Date: 20070205
  Transmission Date: 20070707
  Serious: Yes (Hospitalization)
  Sender: FDA-Public Use
  Company Number: FR-ABBOTT-07P-056-0358262-00

PATIENT
  Age: 71 Year
  Sex: Male

DRUGS (7)
  1. DEPAKOTE [Suspect]
     Indication: BIPOLAR DISORDER
     Route: 048
     Dates: end: 20061223
  2. DEPAKOTE [Suspect]
     Route: 048
     Dates: end: 20061223
  3. MILNACIPRAN [Suspect]
     Indication: DRUG USE FOR UNKNOWN INDICATION
     Route: 048
     Dates: end: 20061223
  4. HALOPERIDOL DECANOATE [Suspect]
     Indication: DRUG USE FOR UNKNOWN INDICATION
     Route: 030
     Dates: start: 20061124, end: 20061215
  5. HALOPERIDOL DECANOATE [Suspect]
     Route: 030
     Dates: end: 20061124
  6. TROPATEPINE HYDROCHLORIDE [Concomitant]
     Indication: DRUG USE FOR UNKNOWN INDICATION
     Route: 048
     Dates: start: 20061215
  7. OXAZEPAM [Concomitant]
     Indication: DRUG USE FOR UNKNOWN INDICATION
     Route: 048
     Dates: start: 20061215

REACTIONS (7)
  - COGNITIVE DISORDER [None]
  - DIARRHOEA [None]
  - EXTRAPYRAMIDAL DISORDER [None]
  - FALL [None]
  - INCOHERENT [None]
  - PARKINSONISM [None]
  - SINUS TACHYCARDIA [None]
